FAERS Safety Report 6287025-9 (Version None)
Quarter: 2009Q3

REPORT INFORMATION
  Report Type: 
  Country: None (occurrence: None)
  Receive Date: 20090727
  Receipt Date: 20090727
  Transmission Date: 20100115
  Serious: Yes (Other)
  Sender: FDA-Public Use
  Company Number: None

PATIENT
  Sex: Male
  Weight: 79 kg

DRUGS (1)
  1. AMLODIPINE BESYLATE [Suspect]
     Indication: HYPERTENSION
     Dosage: 10 MG ONE TABLET/DAY BY MOUTH
     Route: 048
     Dates: start: 20071201, end: 20080509

REACTIONS (2)
  - ATRIAL FIBRILLATION [None]
  - SURGERY [None]
